FAERS Safety Report 11006803 (Version 1)
Quarter: 2015Q2

REPORT INFORMATION
  Report Type: Spontaneous
  Country: US (occurrence: US)
  Receive Date: 20150409
  Receipt Date: 20150409
  Transmission Date: 20150821
  Serious: No
  Sender: FDA-Public Use
  Company Number: US-ALLERGAN-1426287US

PATIENT
  Age: 53 Year
  Sex: Female

DRUGS (3)
  1. METFORMIN [Concomitant]
     Active Substance: METFORMIN HYDROCHLORIDE
     Dosage: UNK
  2. LATISSE [Suspect]
     Active Substance: BIMATOPROST
     Indication: PRODUCT USED FOR UNKNOWN INDICATION
  3. PHENTERMINE [Concomitant]
     Active Substance: PHENTERMINE
     Dosage: UNK

REACTIONS (3)
  - Ocular hyperaemia [Unknown]
  - Eye pruritus [Unknown]
  - Eye irritation [Unknown]
